FAERS Safety Report 5712214-9 (Version None)
Quarter: 2008Q2

REPORT INFORMATION
  Report Type: 
  Country: None (occurrence: None)
  Receive Date: 20080422
  Receipt Date: 20080409
  Transmission Date: 20081010
  Serious: Yes (Hospitalization)
  Sender: FDA-Public Use
  Company Number: US-ELI_LILLY_AND_COMPANY-US200804002429

PATIENT
  Age: 65 Year
  Sex: Male

DRUGS (2)
  1. SYMBYAX [Suspect]
  2. DILAUDID [Concomitant]

REACTIONS (3)
  - DRUG INTERACTION [None]
  - HALLUCINATION [None]
  - HOSPITALISATION [None]
